FAERS Safety Report 17871070 (Version 1)
Quarter: 2020Q2

REPORT INFORMATION
  Report Type: Spontaneous
  Country: US (occurrence: US)
  Receive Date: 20200605
  Receipt Date: 20200605
  Transmission Date: 20200714
  Serious: Yes (Other)
  Sender: FDA-Public Use
  Company Number: None

PATIENT
  Age: 60 Year
  Sex: Female
  Weight: 103 kg

DRUGS (27)
  1. ACETAMINOPHEN. [Concomitant]
     Active Substance: ACETAMINOPHEN
  2. GAULFENSIN [Concomitant]
  3. TOPICAL POWDER [Concomitant]
  4. PROPOFOL. [Concomitant]
     Active Substance: PROPOFOL
  5. TEMAZEPAM. [Concomitant]
     Active Substance: TEMAZEPAM
  6. BUPROPION 300MG 24 HOUR RELEASE TABLET [Concomitant]
     Route: 048
     Dates: start: 20040416
  7. DIPHENHYDRAMINE. [Concomitant]
     Active Substance: DIPHENHYDRAMINE
  8. REMDESIVIR 200MG [Suspect]
     Active Substance: REMDESIVIR
     Indication: COVID-19
     Route: 042
     Dates: start: 20200601, end: 20200601
  9. REMDESIVIR 100MG [Suspect]
     Active Substance: REMDESIVIR
     Indication: COVID-19
     Route: 042
     Dates: start: 20200602, end: 20200603
  10. BISACODYL. [Concomitant]
     Active Substance: BISACODYL
  11. NOREPLENPHRINE [Concomitant]
  12. ONDANESTRON [Concomitant]
  13. CALCIUM CARBONATE. [Concomitant]
     Active Substance: CALCIUM CARBONATE
  14. FAMOTIDINE. [Concomitant]
     Active Substance: FAMOTIDINE
  15. AZLTROMYCIN [Concomitant]
  16. BENZOCAINE-MENTHOL LOZENGE [Concomitant]
  17. FENTANYL. [Concomitant]
     Active Substance: FENTANYL
  18. MIDAZOLAM. [Concomitant]
     Active Substance: MIDAZOLAM
  19. NYSTALIN [Concomitant]
  20. SENNA (SENOKOT) [Concomitant]
  21. HYDROMORPHONE [Concomitant]
     Active Substance: HYDROMORPHONE
  22. POTASSIUM BICARBONATE-CITRIC ACID EFFERVESCENT [Concomitant]
  23. TRAZODONE [Concomitant]
     Active Substance: TRAZODONE HYDROCHLORIDE
  24. SERTRALINE [Concomitant]
     Active Substance: SERTRALINE HYDROCHLORIDE
  25. ENOXAPARIN [Concomitant]
     Active Substance: ENOXAPARIN
  26. MELATONIN [Concomitant]
     Active Substance: MELATONIN
  27. POLYETHYLENE GYLCOL [Concomitant]
     Active Substance: POLYETHYLENE GLYCOLS

REACTIONS (5)
  - Alanine aminotransferase increased [None]
  - Therapy interrupted [None]
  - Aspartate aminotransferase increased [None]
  - Oxygen saturation decreased [None]
  - Blood alkaline phosphatase increased [None]

NARRATIVE: CASE EVENT DATE: 20200604
